FAERS Safety Report 20311273 (Version 1)
Quarter: 2022Q1

REPORT INFORMATION
  Report Type: Spontaneous
  Country: FR (occurrence: FR)
  Receive Date: 20220107
  Receipt Date: 20220107
  Transmission Date: 20220423
  Serious: Yes (Death)
  Sender: FDA-Public Use
  Company Number: None

PATIENT
  Age: 86 Year
  Sex: Female

DRUGS (1)
  1. OXYCODONE HYDROCHLORIDE [Suspect]
     Active Substance: OXYCODONE HYDROCHLORIDE
     Indication: Pain
     Dosage: 72 MG, UNK (STRENGTH 10MG/ML)
     Route: 042
     Dates: start: 20210923, end: 20210925

REACTIONS (2)
  - Product preparation error [Fatal]
  - Bradypnoea [Fatal]

NARRATIVE: CASE EVENT DATE: 20210924
